FAERS Safety Report 8800147 (Version 2)
Quarter: 2012Q4

REPORT INFORMATION
  Report Type: 
  Country: FR (occurrence: FR)
  Receive Date: 20120921
  Receipt Date: 20120926
  Transmission Date: 20130627
  Serious: Yes (Other)
  Sender: FDA-Public Use
  Company Number: FR-BRISTOL-MYERS SQUIBB COMPANY-16870347

PATIENT
  Age: 43 Year
  Sex: Female

DRUGS (3)
  1. REYATAZ CAPS [Suspect]
     Indication: HIV INFECTION
     Dosage: Apr08-Jun09.1DF BID from 22Aug11-13Mar12
     Route: 048
     Dates: start: 200804, end: 20120313
  2. NORVIR [Suspect]
     Indication: HIV INFECTION
     Dosage: 1DF daily from 22Aug11 to 13Mar12
Apr08-Jun09.
     Route: 048
     Dates: start: 200804, end: 20120313
  3. TRUVADA [Suspect]
     Indication: HIV INFECTION
     Route: 048
     Dates: start: 20080414

REACTIONS (2)
  - Weight increased [Recovered/Resolved]
  - Liver disorder [None]
